FAERS Safety Report 22335507 (Version 1)
Quarter: 2023Q2

REPORT INFORMATION
  Report Type: Spontaneous
  Country: CH (occurrence: CH)
  Receive Date: 20230518
  Receipt Date: 20230518
  Transmission Date: 20230722
  Serious: Yes (Life-Threatening, Hospitalization, Other)
  Sender: FDA-Public Use
  Company Number: CH-CPL-003394

PATIENT
  Age: 17 Year
  Sex: Female

DRUGS (13)
  1. VENLAFAXINE [Suspect]
     Active Substance: VENLAFAXINE HYDROCHLORIDE
     Dosage: TABLETS
  2. OXYCODONE HYDROCHLORIDE [Suspect]
     Active Substance: OXYCODONE HYDROCHLORIDE
  3. ZOLMITRIPTAN [Suspect]
     Active Substance: ZOLMITRIPTAN
  4. TRAMADOL [Suspect]
     Active Substance: TRAMADOL
  5. CAFFEINE\MECLIZINE MONOHYDROCHLORIDE\PYRIDOXINE HYDROCHLORIDE [Suspect]
     Active Substance: CAFFEINE\MECLIZINE MONOHYDROCHLORIDE\PYRIDOXINE HYDROCHLORIDE
  6. LIDOCAINE [Suspect]
     Active Substance: LIDOCAINE
  7. NICOTINE [Suspect]
     Active Substance: NICOTINE
  8. METOPROLOL [Suspect]
     Active Substance: METOPROLOL
  9. METOCLOPRAMIDE [Suspect]
     Active Substance: METOCLOPRAMIDE
  10. NALOXONE [Suspect]
     Active Substance: NALOXONE
  11. MIDAZOLAM [Suspect]
     Active Substance: MIDAZOLAM
  12. LEVETIRACETAM [Suspect]
     Active Substance: LEVETIRACETAM
  13. AMOXICILLIN\CLAVULANIC ACID [Suspect]
     Active Substance: AMOXICILLIN\CLAVULANIC ACID

REACTIONS (16)
  - Toxicity to various agents [Unknown]
  - Somnolence [Recovered/Resolved]
  - Status epilepticus [Recovered/Resolved]
  - Sinus tachycardia [Recovered/Resolved]
  - Hypotension [Recovered/Resolved]
  - Disseminated intravascular coagulation [Recovered/Resolved]
  - Acute hepatic failure [Recovered/Resolved]
  - Cardiogenic shock [Recovered/Resolved]
  - Serotonin syndrome [Recovered/Resolved]
  - Cardiac failure [Recovered/Resolved]
  - Circulatory collapse [Recovered/Resolved]
  - Metabolic acidosis [Recovered/Resolved]
  - Lactic acidosis [Recovered/Resolved]
  - Acute kidney injury [Unknown]
  - Pleural effusion [Unknown]
  - Intentional overdose [Unknown]
